FAERS Safety Report 14214159 (Version 3)
Quarter: 2017Q4

REPORT INFORMATION
  Report Type: Report from Study
  Country: AR (occurrence: AR)
  Receive Date: 20171122
  Receipt Date: 20171211
  Transmission Date: 20180321
  Serious: Yes (Hospitalization, Other)
  Sender: FDA-Public Use
  Company Number: PHHY2017AR170884

PATIENT
  Sex: Female

DRUGS (1)
  1. GILENYA [Suspect]
     Active Substance: FINGOLIMOD HYDROCHLORIDE
     Indication: MULTIPLE SCLEROSIS
     Dosage: 0.5 MG, QD
     Route: 065
     Dates: end: 20171010

REACTIONS (6)
  - Emphysema [Unknown]
  - Lung neoplasm [Not Recovered/Not Resolved]
  - Breast mass [Unknown]
  - Fatigue [Unknown]
  - Scar [Unknown]
  - Dyspnoea [Unknown]

NARRATIVE: CASE EVENT DATE: 2007
